FAERS Safety Report 11779179 (Version 1)
Quarter: 2015Q4

REPORT INFORMATION
  Report Type: Spontaneous
  Country: CL (occurrence: CL)
  Receive Date: 20151125
  Receipt Date: 20151125
  Transmission Date: 20160304
  Serious: Yes (Life-Threatening)
  Sender: FDA-Public Use
  Company Number: CL-ASTRAZENECA-2015SF18307

PATIENT
  Sex: Male

DRUGS (3)
  1. VANNAIR [Suspect]
     Active Substance: BUDESONIDE\FORMOTEROL FUMARATE DIHYDRATE
     Indication: ASTHMA
     Dosage: DOSE AND FREQUENCY UNKNOWN
     Route: 055
     Dates: start: 20151120, end: 20151120
  2. ATORVASTATIN [Concomitant]
     Active Substance: ATORVASTATIN
  3. LOSARTAN. [Concomitant]
     Active Substance: LOSARTAN

REACTIONS (2)
  - Asphyxia [Recovered/Resolved]
  - Dyspnoea [Recovered/Resolved]

NARRATIVE: CASE EVENT DATE: 20151120
